FAERS Safety Report 6960171-X (Version None)
Quarter: 2010Q3

REPORT INFORMATION
  Report Type: 
  Country: None (occurrence: None)
  Receive Date: 20100901
  Receipt Date: 20100826
  Transmission Date: 20110219
  Serious: Yes (Hospitalization)
  Sender: FDA-Public Use
  Company Number: FR-ASTRAZENECA-2009SE31915

PATIENT
  Age: 23360 Day
  Sex: Male
  Weight: 72 kg

DRUGS (3)
  1. ZD6474 [Suspect]
     Indication: PROSTATE CANCER METASTATIC
     Route: 048
     Dates: start: 20091113, end: 20091202
  2. BICALUTAMIDE [Suspect]
     Indication: PROSTATE CANCER METASTATIC
     Route: 048
     Dates: start: 20091113, end: 20091202
  3. ALTEIS [Concomitant]
     Indication: HYPERTENSION
     Dosage: ONE DAILY
     Route: 048
     Dates: start: 20070101, end: 20091202

REACTIONS (3)
  - ELECTROCARDIOGRAM QT PROLONGED [None]
  - HYPERTENSIVE CRISIS [None]
  - VENTRICULAR EXTRASYSTOLES [None]
